FAERS Safety Report 16142556 (Version 13)
Quarter: 2021Q1

REPORT INFORMATION
  Report Type: Report from Study
  Country: GB (occurrence: GB)
  Receive Date: 20190401
  Receipt Date: 20210326
  Transmission Date: 20210419
  Serious: Yes (Death, Other)
  Sender: FDA-Public Use
  Company Number: GB-MYLANLABS-2019M1028945

PATIENT
  Age: 61 Year
  Sex: Female

DRUGS (66)
  1. TRASTUZUMAB. [Suspect]
     Active Substance: TRASTUZUMAB
     Dosage: 350 MILLIGRAM, LOADING DOSE
     Route: 042
     Dates: start: 20150601, end: 20150601
  2. TRASTUZUMAB. [Suspect]
     Active Substance: TRASTUZUMAB
     Dosage: UNK UNK, Q3W, DOSE REDUCED
     Route: 042
  3. TRASTUZUMAB. [Suspect]
     Active Substance: TRASTUZUMAB
     Dosage: 140 MILLIGRAM, Q3W
     Route: 042
     Dates: start: 20160215, end: 20160215
  4. CAPECITABINE. [Suspect]
     Active Substance: CAPECITABINE
     Dosage: 3000 MILLIGRAM, BID
     Route: 048
     Dates: start: 20170210, end: 20170728
  5. SANDO K                            /00209301/ [Concomitant]
     Active Substance: POTASSIUM BICARBONATE\POTASSIUM CHLORIDE
     Indication: NUTRITIONAL SUPPLEMENTATION
     Dosage: 2 DOSAGE FORM, QD,2 TABLETS EVERY DAY
     Route: 048
     Dates: start: 20150828, end: 20150830
  6. CO?AMOXICLAV                       /01000301/ [Concomitant]
     Active Substance: AMOXICILLIN\CLAVULANATE POTASSIUM
     Dosage: 1875 MILLIGRAM, QD
     Route: 048
     Dates: start: 20170222, end: 20170228
  7. AMLODIPINE [Concomitant]
     Active Substance: AMLODIPINE BESYLATE
     Dosage: 10 MILLIGRAM
     Route: 048
  8. TRASTUZUMAB. [Suspect]
     Active Substance: TRASTUZUMAB
     Dosage: 1 DF, Q3W,DOSE REDUCED
     Route: 042
  9. TRASTUZUMAB. [Suspect]
     Active Substance: TRASTUZUMAB
     Dosage: 172 MILLIGRAM, Q3W
     Route: 042
     Dates: start: 20151201, end: 20151221
  10. TRASTUZUMAB. [Suspect]
     Active Substance: TRASTUZUMAB
     Dosage: 140 MILLIGRAM, Q3W
     Route: 042
  11. VINORELBINE [Suspect]
     Active Substance: VINORELBINE TARTRATE
     Indication: BREAST CANCER METASTATIC
     Dosage: 60 MILLIGRAM
     Route: 048
     Dates: start: 20180608, end: 20180810
  12. ERIBULIN MESILATE [Suspect]
     Active Substance: ERIBULIN
     Indication: HER2 POSITIVE BREAST CANCER
     Dosage: 1.5 MILLIGRAM, Q3W
     Route: 042
     Dates: start: 20160411, end: 20160624
  13. NERATINIB [Suspect]
     Active Substance: NERATINIB
     Dosage: 240 MILLIGRAM, QD
     Route: 048
     Dates: start: 20170901, end: 20180216
  14. MUPIROCIN. [Concomitant]
     Active Substance: MUPIROCIN
     Indication: PROPHYLAXIS
     Dosage: 2 PERCENT, QD
     Route: 061
     Dates: start: 20160620, end: 20160624
  15. DOMPERIDONE [Concomitant]
     Active Substance: DOMPERIDONE
     Dosage: 30 MILLIGRAM, QD
     Route: 048
     Dates: start: 20160406, end: 20160421
  16. GENTAMICIN. [Concomitant]
     Active Substance: GENTAMICIN
     Indication: LOWER RESPIRATORY TRACT INFECTION
     Dosage: UNK
     Route: 042
     Dates: start: 20170213, end: 201702
  17. GRANULOCYTE COLONY STIMULATING FACTOR [Concomitant]
     Active Substance: GRANULOCYTE COLONY-STIMULATING FACTOR NOS
     Dosage: 300 MCG (QD FOR 3 DAYS STARTING ON DAY 3 AND 11) RECEIVED 300 MCG FROM 25?JUL?2015 TO 30?JUL?2015
     Route: 058
     Dates: start: 20160421, end: 20160721
  18. TRASTUZUMAB. [Suspect]
     Active Substance: TRASTUZUMAB
     Dosage: 140 MILLIGRAM, Q3W
     Route: 042
     Dates: start: 20151201, end: 20160215
  19. CAPECITABINE. [Suspect]
     Active Substance: CAPECITABINE
     Indication: BREAST CANCER METASTATIC
     Dosage: 3000 MILLIGRAM, QD
     Route: 048
     Dates: start: 20170210, end: 20170728
  20. PERTUZUMAB. [Suspect]
     Active Substance: PERTUZUMAB
     Indication: HER2 POSITIVE BREAST CANCER
     Dosage: 420 MILLIGRAM, Q3W,TARGETED THERAPY
     Route: 042
     Dates: start: 20150622, end: 20151102
  21. PERTUZUMAB. [Suspect]
     Active Substance: PERTUZUMAB
     Indication: BREAST CANCER METASTATIC
     Dosage: 840 MILLIGRAM,LOADING CASE
     Route: 042
  22. TRASTUZUMAB EMTANSINE [Suspect]
     Active Substance: ADO-TRASTUZUMAB EMTANSINE
     Indication: BREAST CANCER METASTATIC
     Dosage: 172 MILLIGRAM, Q3W
     Route: 042
     Dates: start: 20151201, end: 20151221
  23. DOCETAXEL. [Suspect]
     Active Substance: DOCETAXEL
     Indication: BREAST CANCER METASTATIC
     Dosage: 86 MILLIGRAM, Q3W, DOSE DISCONTINUED, THREE WEEK
     Route: 042
     Dates: start: 20150629, end: 20150720
  24. DOCETAXEL. [Suspect]
     Active Substance: DOCETAXEL
     Dosage: DOSE DISCONTINUED
     Route: 042
     Dates: start: 20150629, end: 20150720
  25. CIPROFLOXACIN. [Concomitant]
     Active Substance: CIPROFLOXACIN
     Dosage: 500 MILLIGRAM, QD
     Route: 048
     Dates: start: 20151218, end: 20151225
  26. TRASTUZUMAB. [Suspect]
     Active Substance: TRASTUZUMAB
     Dosage: 300 MILLIGRAM, Q3W
     Route: 042
  27. CAPECITABINE. [Suspect]
     Active Substance: CAPECITABINE
     Dosage: 3000 MILLIGRAM, QD
     Route: 048
     Dates: start: 20170210
  28. PERTUZUMAB. [Suspect]
     Active Substance: PERTUZUMAB
     Dosage: 1 DOSAGE FORM, Q3W, UNK, Q3WK, DOSE REDUCED
     Route: 042
  29. TRASTUZUMAB EMTANSINE [Suspect]
     Active Substance: ADO-TRASTUZUMAB EMTANSINE
     Indication: HER2 POSITIVE BREAST CANCER
     Dosage: 140 MILLIGRAM, Q3W
     Route: 042
     Dates: start: 20151201, end: 20160215
  30. TRASTUZUMAB EMTANSINE [Suspect]
     Active Substance: ADO-TRASTUZUMAB EMTANSINE
     Dosage: 140 MILLIGRAM, Q3W
     Route: 042
     Dates: start: 20160215, end: 20160215
  31. ERIBULIN MESILATE [Suspect]
     Active Substance: ERIBULIN
     Indication: BREAST CANCER METASTATIC
     Dosage: UNK
  32. TRASTUZUMAB. [Suspect]
     Active Substance: TRASTUZUMAB
     Indication: HER2 POSITIVE BREAST CANCER
     Dosage: 172 MILLIGRAM, Q3W
     Route: 042
     Dates: start: 20151201, end: 20151221
  33. TRASTUZUMAB. [Suspect]
     Active Substance: TRASTUZUMAB
     Dosage: UNK UNK, Q3W
     Route: 042
  34. VINORELBINE [Suspect]
     Active Substance: VINORELBINE TARTRATE
     Indication: HER2 POSITIVE BREAST CANCER
     Dosage: 60 MILLIGRAM
     Route: 048
     Dates: start: 20180503, end: 20180608
  35. PERTUZUMAB. [Suspect]
     Active Substance: PERTUZUMAB
     Dosage: 1 DOSAGE FORM
     Route: 042
  36. TRASTUZUMAB EMTANSINE [Suspect]
     Active Substance: ADO-TRASTUZUMAB EMTANSINE
     Dosage: 172 MILLIGRAM, Q3W
     Route: 042
     Dates: start: 20151201
  37. DOCETAXEL. [Suspect]
     Active Substance: DOCETAXEL
     Dosage: 80 MILLIGRAM
     Dates: start: 20150629
  38. NERATINIB [Suspect]
     Active Substance: NERATINIB
     Indication: BREAST CANCER METASTATIC
     Dosage: UNK
     Route: 065
  39. FILGRASTIM [Concomitant]
     Active Substance: FILGRASTIM
     Dosage: 300 MICROGRAM, QD
     Route: 058
     Dates: start: 20150725, end: 20150730
  40. TAZOCIN [Concomitant]
     Active Substance: PIPERACILLIN SODIUM\TAZOBACTAM SODIUM
     Indication: LOWER RESPIRATORY TRACT INFECTION
     Dosage: UNK
     Route: 042
     Dates: start: 20170213, end: 20170215
  41. TRASTUZUMAB EMTANSINE [Suspect]
     Active Substance: ADO-TRASTUZUMAB EMTANSINE
     Dosage: 140 MILLIGRAM, Q3W
     Route: 042
  42. ERIBULIN MESILATE [Suspect]
     Active Substance: ERIBULIN
     Indication: BREAST CANCER METASTATIC
     Dosage: 1.5 MILLIGRAM, Q3W
     Route: 042
  43. ERIBULIN MESILATE [Suspect]
     Active Substance: ERIBULIN
     Dosage: 1.5 MILLIGRAM
     Route: 042
  44. DOCETAXEL. [Suspect]
     Active Substance: DOCETAXEL
     Indication: HER2 POSITIVE BREAST CANCER
     Dosage: 108 MILLIGRAM, Q3W,DOSE MODIFIED
     Route: 042
     Dates: start: 20150602, end: 20150602
  45. NERATINIB [Suspect]
     Active Substance: NERATINIB
     Dosage: 240 MILLIGRAM, QD
     Dates: start: 20180223, end: 20180420
  46. MEROPENEM. [Concomitant]
     Active Substance: MEROPENEM
     Indication: LOWER RESPIRATORY TRACT INFECTION
     Dosage: UNK
     Route: 042
     Dates: start: 20170215, end: 20170221
  47. DOMPERIDONE [Concomitant]
     Active Substance: DOMPERIDONE
     Dosage: 10 MILLIGRAM, QD
     Route: 048
     Dates: start: 20160406, end: 20160421
  48. FILGRASTIM [Concomitant]
     Active Substance: FILGRASTIM
     Dosage: 300 MCG,EVERY DAY FOR 3 DAYS STARTING ON DAYS 3 AND 11
     Route: 058
     Dates: start: 20160421, end: 20160712
  49. CIPROFLOXACIN. [Concomitant]
     Active Substance: CIPROFLOXACIN
     Dosage: 1000 MILLIGRAM, QD
     Route: 048
     Dates: start: 20151218, end: 20151225
  50. CO?AMOXICLAV                       /01000301/ [Concomitant]
     Active Substance: AMOXICILLIN\CLAVULANATE POTASSIUM
     Indication: LOWER RESPIRATORY TRACT INFECTION
     Dosage: 625 MILLIGRAM, QD
     Route: 048
     Dates: start: 20170222, end: 20170228
  51. TRASTUZUMAB. [Suspect]
     Active Substance: TRASTUZUMAB
     Indication: BREAST CANCER METASTATIC
     Dosage: 300 MILLIGRAM, Q3W (DOSE MODIFIED)
     Route: 042
     Dates: start: 20150629, end: 20151102
  52. NERATINIB [Suspect]
     Active Substance: NERATINIB
     Indication: HER2 POSITIVE BREAST CANCER
     Dosage: 40 MILLIGRAM, QD
     Route: 048
     Dates: start: 20170901, end: 20180314
  53. NERATINIB [Suspect]
     Active Substance: NERATINIB
     Indication: BREAST CANCER METASTATIC
     Dosage: 40 MILLIGRAM, QD
     Route: 048
  54. MUPIROCIN. [Concomitant]
     Active Substance: MUPIROCIN
     Dosage: 6 PERCENT, QD
     Route: 061
     Dates: start: 20160620, end: 20160624
  55. SANDO K                            /00209301/ [Concomitant]
     Active Substance: POTASSIUM BICARBONATE\POTASSIUM CHLORIDE
     Dosage: 1 DOSAGE FORM, QD (2 TABLETS EVERY DAY)
     Route: 048
     Dates: start: 20150828, end: 20150830
  56. TRASTUZUMAB. [Suspect]
     Active Substance: TRASTUZUMAB
     Dosage: 140 MILLIGRAM, Q3W, 140 MILLIGRAM, Q3WK
     Route: 042
     Dates: start: 20160215, end: 20160215
  57. TRASTUZUMAB. [Suspect]
     Active Substance: TRASTUZUMAB
     Dosage: 300 MILLIGRAM, Q3W (DOSE MODIFIED)
     Route: 042
  58. CAPECITABINE. [Suspect]
     Active Substance: CAPECITABINE
     Indication: HER2 POSITIVE BREAST CANCER
     Dosage: 1500 MILLIGRAM, QD
     Route: 048
     Dates: start: 20170210, end: 20170728
  59. CAPECITABINE. [Suspect]
     Active Substance: CAPECITABINE
     Dosage: 1500 MILLIGRAM, BID
     Route: 048
  60. VINORELBINE [Suspect]
     Active Substance: VINORELBINE TARTRATE
     Dosage: 60 MILLIGRAM
     Route: 048
  61. PERTUZUMAB. [Suspect]
     Active Substance: PERTUZUMAB
     Dosage: 420 MILLIGRAM, Q3W,TARGETED THERAPY
     Route: 042
  62. DOCETAXEL. [Suspect]
     Active Substance: DOCETAXEL
     Dosage: 108 MILLIGRAM, Q3W
     Route: 042
  63. NERATINIB [Suspect]
     Active Substance: NERATINIB
     Dosage: 40 MILLIGRAM
     Route: 048
  64. LOPERAMIDE [Concomitant]
     Active Substance: LOPERAMIDE
     Indication: DIARRHOEA
     Dosage: 2 MILLIGRAM, PRN
     Route: 048
     Dates: start: 20170901, end: 20171124
  65. FOLIC ACID. [Concomitant]
     Active Substance: FOLIC ACID
     Indication: BLOOD FOLATE DECREASED
     Dosage: 5 MILLIGRAM, QD
     Route: 048
     Dates: start: 20150828, end: 201708
  66. FOLIC ACID. [Concomitant]
     Active Substance: FOLIC ACID
     Dosage: 5 MILLIGRAM, QD
     Route: 048
     Dates: start: 20150828

REACTIONS (30)
  - Condition aggravated [Not Recovered/Not Resolved]
  - Diarrhoea [Recovered/Resolved]
  - Neutropenia [Not Recovered/Not Resolved]
  - Hyperchlorhydria [Recovered/Resolved]
  - Alopecia [Not Recovered/Not Resolved]
  - Colitis [Not Recovered/Not Resolved]
  - Dyspepsia [Recovered/Resolved]
  - Off label use [Unknown]
  - Weight decreased [Not Recovered/Not Resolved]
  - Rash pruritic [Recovered/Resolved]
  - Palpitations [Unknown]
  - Cough [Recovered/Resolved]
  - Lethargy [Recovered/Resolved]
  - Decreased appetite [Recovered/Resolved]
  - Fatigue [Recovered/Resolved]
  - Neuropathy peripheral [Unknown]
  - Dysphonia [Recovering/Resolving]
  - Mucosal inflammation [Recovered/Resolved]
  - Disease progression [Fatal]
  - Pancytopenia [Not Recovered/Not Resolved]
  - Thrombocytopenia [Not Recovered/Not Resolved]
  - Odynophagia [Not Recovered/Not Resolved]
  - Intentional product misuse [Unknown]
  - Product use issue [Unknown]
  - Throat irritation [Not Recovered/Not Resolved]
  - Hypoaesthesia [Unknown]
  - Tremor [Recovered/Resolved]
  - Nausea [Recovered/Resolved]
  - Folate deficiency [Recovered/Resolved]
  - Pyrexia [Recovered/Resolved]

NARRATIVE: CASE EVENT DATE: 20150601
